FAERS Safety Report 9163221 (Version 1)
Quarter: 2013Q1

REPORT INFORMATION
  Report Type: Spontaneous
  Country: US (occurrence: None)
  Receive Date: 20130226
  Receipt Date: 20130226
  Transmission Date: 20140127
  Serious: Yes (Other)
  Sender: FDA-Public Use
  Company Number: IMP_06568_2013

PATIENT
  Sex: Male

DRUGS (1)
  1. BUDEPRION [Suspect]
     Dosage: FREQUENT UNKNOWN
     Dates: start: 2006, end: 2011

REACTIONS (4)
  - Injury [None]
  - Loss of employment [None]
  - Product quality issue [None]
  - Drug ineffective [None]
